FAERS Safety Report 21375076 (Version 3)
Quarter: 2022Q4

REPORT INFORMATION
  Report Type: Report from Study
  Country: CA (occurrence: CA)
  Receive Date: 20220926
  Receipt Date: 20221108
  Transmission Date: 20230113
  Serious: Yes (Other)
  Sender: FDA-Public Use
  Company Number: CA-MYLANLABS-2022M1096132

PATIENT
  Age: 73 Year
  Sex: Male

DRUGS (2)
  1. HULIO [Suspect]
     Active Substance: ADALIMUMAB-FKJP
     Indication: Crohn^s disease
     Dosage: 40 MILLIGRAM, BIWEEKLY
     Route: 058
     Dates: start: 20220420
  2. HULIO [Suspect]
     Active Substance: ADALIMUMAB-FKJP
     Dosage: UNK, BIWEEKLY
     Route: 058
     Dates: start: 20220327

REACTIONS (2)
  - Neoplasm malignant [Unknown]
  - Therapy interrupted [Unknown]
